FAERS Safety Report 21731928 (Version 2)
Quarter: 2023Q1

REPORT INFORMATION
  Report Type: Report from Study
  Country: IT (occurrence: IT)
  Receive Date: 20221215
  Receipt Date: 20230123
  Transmission Date: 20230418
  Serious: Yes (Death)
  Sender: FDA-Public Use
  Company Number: IT-ABBVIE-4236616

PATIENT
  Age: 68 Year
  Sex: Male
  Weight: 79 kg

DRUGS (2)
  1. VENETOCLAX [Suspect]
     Active Substance: VENETOCLAX
     Indication: Mantle cell lymphoma
     Route: 048
     Dates: start: 20220924, end: 20221210
  2. DEXAMETHASONE [Concomitant]
     Active Substance: DEXAMETHASONE
     Indication: Mantle cell lymphoma
     Dosage: 4 MILLIGRAM
     Route: 042
     Dates: start: 20221201

REACTIONS (1)
  - Death [Fatal]

NARRATIVE: CASE EVENT DATE: 20221212
